FAERS Safety Report 19700696 (Version 2)
Quarter: 2021Q3

REPORT INFORMATION
  Report Type: Report from Study
  Country: BE (occurrence: BE)
  Receive Date: 20210813
  Receipt Date: 20210827
  Transmission Date: 20211014
  Serious: Yes (Hospitalization)
  Sender: FDA-Public Use
  Company Number: BE-PFIZER INC-202101012446

PATIENT
  Age: 68 Year
  Sex: Female
  Weight: 90 kg

DRUGS (29)
  1. RITUXIMAB. [Suspect]
     Active Substance: RITUXIMAB
     Indication: DIFFUSE LARGE B-CELL LYMPHOMA STAGE III
     Dosage: 375 MG/M2, 1Q3W
     Route: 042
     Dates: start: 20210607
  2. VINCRISTINE [Suspect]
     Active Substance: VINCRISTINE
     Indication: DIFFUSE LARGE B-CELL LYMPHOMA STAGE III
     Dosage: 1.4 MG/M2, 1Q3W
     Route: 042
     Dates: start: 20210608
  3. PROMETHAZINE [Concomitant]
     Active Substance: PROMETHAZINE HYDROCHLORIDE
     Dosage: 12 MG
     Route: 042
     Dates: start: 20210720, end: 20210803
  4. CITALOPRAM [Concomitant]
     Active Substance: CITALOPRAM HYDROBROMIDE
     Dosage: UNK
     Dates: start: 20150710
  5. EPCORITAMAB. [Suspect]
     Active Substance: EPCORITAMAB
     Dosage: DUOBODY?CD3XCD20, FULL DOSE: 48 MG, WEEKLY
     Route: 058
     Dates: start: 20210622, end: 20210720
  6. PARACETAMOL [Concomitant]
     Active Substance: ACETAMINOPHEN
     Dosage: UNK
     Dates: start: 20201028
  7. DUSPATALIN [MEBEVERINE HYDROCHLORIDE] [Concomitant]
     Active Substance: MEBEVERINE HYDROCHLORIDE
     Dosage: UNK
     Dates: start: 20201028
  8. MIRTAZAPINE. [Concomitant]
     Active Substance: MIRTAZAPINE
     Dosage: UNK
     Dates: start: 20201028
  9. METHYLPREDNISOLONE. [Concomitant]
     Active Substance: METHYLPREDNISOLONE
     Dosage: 80 MG
     Route: 048
     Dates: start: 20210629, end: 20210703
  10. DOXORUBICIN HCL [Suspect]
     Active Substance: DOXORUBICIN HYDROCHLORIDE
     Indication: DIFFUSE LARGE B-CELL LYMPHOMA STAGE III
     Dosage: 50MG/M2, 1Q3W
     Route: 042
     Dates: start: 20210608
  11. CYCLOPHOSPHAMIDE. [Suspect]
     Active Substance: CYCLOPHOSPHAMIDE
     Indication: DIFFUSE LARGE B-CELL LYMPHOMA STAGE III
     Dosage: 750 MG/M2, 1Q3W
     Route: 042
     Dates: start: 20210608
  12. METHYLPREDNISOLONE. [Concomitant]
     Active Substance: METHYLPREDNISOLONE
     Dosage: 80 MG
     Route: 048
     Dates: start: 20210720, end: 20210724
  13. MOBIFLEX NEO [Concomitant]
     Dosage: UNK
     Dates: start: 20151202
  14. TRADONAL [Concomitant]
     Active Substance: TRAMADOL HYDROCHLORIDE
     Dosage: UNK
     Dates: start: 202105
  15. EPCORITAMAB. [Suspect]
     Active Substance: EPCORITAMAB
     Indication: DIFFUSE LARGE B-CELL LYMPHOMA STAGE III
     Dosage: DUOBODY?CD3XCD20, PRIMING DOSE: 0.16 MG, SINGLE
     Route: 058
     Dates: start: 20210608, end: 20210608
  16. PARACETAMOL [Concomitant]
     Active Substance: ACETAMINOPHEN
     Dosage: 1 G
     Route: 048
     Dates: start: 20210720, end: 20210803
  17. FOSAMAX [Concomitant]
     Active Substance: ALENDRONATE SODIUM
     Dosage: UNK
     Dates: start: 20150921
  18. TOTALIP [Concomitant]
     Active Substance: ATORVASTATIN
     Dosage: UNK
     Dates: start: 20201028
  19. ZYLORIC [Concomitant]
     Active Substance: ALLOPURINOL
     Dosage: UNK
     Dates: start: 20210528
  20. PREDNISONE. [Suspect]
     Active Substance: PREDNISONE
     Dosage: 80 MG, QD
     Route: 048
     Dates: start: 20210629, end: 20210703
  21. LORMETAZEPAM [Concomitant]
     Active Substance: LORMETAZEPAM
     Dosage: UNK
     Dates: start: 2002
  22. PREDNISONE. [Suspect]
     Active Substance: PREDNISONE
     Dosage: 80 MG, QD
     Route: 048
     Dates: start: 20210720, end: 20210724
  23. CARVEDILOL. [Concomitant]
     Active Substance: CARVEDILOL
     Dosage: UNK
     Dates: start: 20150710
  24. OMEPRAZOLE. [Concomitant]
     Active Substance: OMEPRAZOLE
     Dosage: UNK
     Dates: start: 20081002
  25. URSOFALK [Concomitant]
     Active Substance: URSODIOL
     Dosage: UNK
     Dates: start: 20150710
  26. EPCORITAMAB. [Suspect]
     Active Substance: EPCORITAMAB
     Dosage: DUOBODY?CD3XCD20, INTERMEDIATE DOSE: 0.8 MG, SINGLE
     Route: 058
     Dates: start: 20210615, end: 20210615
  27. PREDNISONE. [Suspect]
     Active Substance: PREDNISONE
     Indication: DIFFUSE LARGE B-CELL LYMPHOMA STAGE III
     Dosage: 80 MG, QD
     Route: 048
     Dates: start: 20210608, end: 20210612
  28. METHYLPREDNISOLONE. [Concomitant]
     Active Substance: METHYLPREDNISOLONE
     Dosage: 80 MG
     Route: 048
     Dates: start: 20210608, end: 20210612
  29. ZOVIRAX [Concomitant]
     Active Substance: ACYCLOVIR
     Dosage: UNK
     Dates: start: 20210528

REACTIONS (1)
  - Escherichia urinary tract infection [Recovered/Resolved]

NARRATIVE: CASE EVENT DATE: 20210724
